FAERS Safety Report 12942969 (Version 1)
Quarter: 2016Q4

REPORT INFORMATION
  Report Type: Spontaneous
  Country: US (occurrence: US)
  Receive Date: 20161115
  Receipt Date: 20161115
  Transmission Date: 20170207
  Serious: Yes (Other)
  Sender: FDA-Public Use
  Company Number: US-AKORN PHARMACEUTICALS-2016AKN00790

PATIENT
  Sex: Female

DRUGS (1)
  1. MYORISAN [Suspect]
     Active Substance: ISOTRETINOIN
     Indication: ACNE CYSTIC
     Dosage: 40 MG, 2X/DAY

REACTIONS (5)
  - Bipolar disorder [Recovering/Resolving]
  - Anger [Recovering/Resolving]
  - Affect lability [Recovering/Resolving]
  - Amnesia [Recovering/Resolving]
  - Agitation [Recovering/Resolving]
